FAERS Safety Report 25861355 (Version 2)
Quarter: 2025Q4

REPORT INFORMATION
  Report Type: Report from Study
  Country: CN (occurrence: None)
  Receive Date: 20250929
  Receipt Date: 20251217
  Transmission Date: 20260118
  Serious: Yes (Hospitalization)
  Sender: JIANGSU HANSOH PHARMACEUTICAL GROUP CO., LTD.
  Company Number: CN-Hansoh-20252190017583

PATIENT
  Age: 50 Year
  Sex: Male
  Weight: 59 kg

DRUGS (6)
  1. GEMCITABINE [Suspect]
     Active Substance: GEMCITABINE
     Indication: Diffuse large B-cell lymphoma refractory
     Dosage: 1.65 G, ONCE ONLY
     Route: 041
     Dates: start: 20250730, end: 20250730
  2. GEMCITABINE [Suspect]
     Active Substance: GEMCITABINE
     Dosage: 1.68 G, ONCE ONLY
     Route: 041
     Dates: start: 20250821, end: 20250821
  3. RITUXIMAB [Suspect]
     Active Substance: RITUXIMAB
     Indication: Diffuse large B-cell lymphoma refractory
     Dosage: 600MG,QD, ONCE ONLY
     Route: 041
     Dates: start: 20250729, end: 20250729
  4. RITUXIMAB [Suspect]
     Active Substance: RITUXIMAB
     Dosage: 630MG,SINGLE DOSE
     Route: 041
     Dates: start: 20250820, end: 20250820
  5. OXALIPLATIN [Suspect]
     Active Substance: OXALIPLATIN
     Indication: Diffuse large B-cell lymphoma refractory
     Dosage: TEST RESULT:16TEST UNIT:ABSENTTEST ASSESSMENT:DONEH165 MG,SINGLE DOSE
     Route: 041
     Dates: start: 20250730, end: 20250730
  6. OXALIPLATIN [Suspect]
     Active Substance: OXALIPLATIN
     Dosage: 168 MG,SINGLE DOSE
     Route: 041
     Dates: start: 20250821, end: 20250821

REACTIONS (1)
  - Abdominal pain [Not Recovered/Not Resolved]

NARRATIVE: CASE EVENT DATE: 20250905
